FAERS Safety Report 11611680 (Version 2)
Quarter: 2015Q4

REPORT INFORMATION
  Report Type: Spontaneous
  Country: PK (occurrence: PK)
  Receive Date: 20151008
  Receipt Date: 20151113
  Transmission Date: 20160304
  Serious: Yes (Death)
  Sender: FDA-Public Use
  Company Number: PK-SA-2015SA151290

PATIENT
  Age: 12 Year
  Sex: Male

DRUGS (1)
  1. THYMOGLOBULINE [Suspect]
     Active Substance: LAPINE T-LYMPHOCYTE IMMUNE GLOBULIN
     Indication: BONE MARROW TRANSPLANT
     Route: 042
     Dates: start: 20150913, end: 20150919

REACTIONS (2)
  - Death [Fatal]
  - Transaminases increased [Recovering/Resolving]

NARRATIVE: CASE EVENT DATE: 201509
